FAERS Safety Report 7285451-2 (Version None)
Quarter: 2011Q1

REPORT INFORMATION
  Report Type: 
  Country: None (occurrence: None)
  Receive Date: 20110121
  Receipt Date: 20090914
  Transmission Date: 20110831
  Serious: No
  Sender: FDA-Public Use
  Company Number: AE 2009-116

PATIENT
  Age: 21 Year
  Sex: Female

DRUGS (3)
  1. FAZACLO ODT [Suspect]
     Indication: PSYCHOTIC BEHAVIOUR
     Dosage: 400 MG DAILY PO
     Route: 048
     Dates: start: 20090101
  2. PROVIGIL [Concomitant]
  3. LORAZEPAM [Concomitant]

REACTIONS (2)
  - INCREASED APPETITE [None]
  - WEIGHT INCREASED [None]
